FAERS Safety Report 8220131-8 (Version None)
Quarter: 2012Q1

REPORT INFORMATION
  Report Type: 
  Country: None (occurrence: None)
  Receive Date: 20120320
  Receipt Date: 20120315
  Transmission Date: 20120608
  Serious: No
  Sender: FDA-Public Use
  Company Number: US-BIOGENIDEC-2012BI009288

PATIENT
  Age: 44 Year
  Sex: Female

DRUGS (2)
  1. AVONEX [Suspect]
     Indication: MULTIPLE SCLEROSIS
     Route: 030
     Dates: start: 19960101, end: 20080316
  2. AVONEX [Suspect]
     Route: 030
     Dates: start: 20090401

REACTIONS (4)
  - LOSS OF CONTROL OF LEGS [None]
  - BALANCE DISORDER [None]
  - GAIT DISTURBANCE [None]
  - MOBILITY DECREASED [None]
